FAERS Safety Report 10159854 (Version 1)
Quarter: 2014Q2

REPORT INFORMATION
  Report Type: Spontaneous
  Country: US (occurrence: US)
  Receive Date: 20140508
  Receipt Date: 20140508
  Transmission Date: 20141212
  Serious: No
  Sender: FDA-Public Use
  Company Number: US-GLAXOSMITHKLINE-A1036679A

PATIENT
  Age: 67 Year
  Sex: Female

DRUGS (14)
  1. TYKERB [Suspect]
     Indication: GASTRIC CANCER
     Dosage: 1000MG PER DAY
     Route: 048
     Dates: start: 20130506
  2. VENLAFAXINE [Concomitant]
  3. LOVASTATIN [Concomitant]
  4. PROCHLORPERAZINE [Concomitant]
  5. FLUOCINOLONE ACETONIDE [Concomitant]
  6. LATANOPROST [Concomitant]
  7. ATENOLOL [Concomitant]
  8. FLUOXETINE [Concomitant]
  9. LOSARTAN [Concomitant]
  10. TRIAMCINOLONE [Concomitant]
  11. VICODIN [Concomitant]
  12. ONDANSETRON [Concomitant]
  13. LEVOTHYROXINE [Concomitant]
  14. OMEPRAZOLE [Concomitant]

REACTIONS (2)
  - Diarrhoea [Unknown]
  - Blood disorder [Unknown]
